FAERS Safety Report 19174206 (Version 1)
Quarter: 2021Q2

REPORT INFORMATION
  Report Type: Spontaneous
  Country: US (occurrence: US)
  Receive Date: 20210423
  Receipt Date: 20210423
  Transmission Date: 20210717
  Serious: Yes (Hospitalization, Other)
  Sender: FDA-Public Use
  Company Number: US-NESTLEHEALTHSCIENCE-201700121

PATIENT
  Age: 68 Year
  Sex: Female
  Weight: 70.3 kg

DRUGS (83)
  1. TAZACT [Concomitant]
     Active Substance: PIPERACILLIN SODIUM\TAZOBACTAM SODIUM
     Route: 065
  2. MOBIC [Concomitant]
     Active Substance: MELOXICAM
     Route: 065
  3. INFLUENZA VACCINE [Concomitant]
     Active Substance: INFLUENZA VIRUS VACCINE
     Dosage: UNK
     Dates: start: 20141114
  4. PNEUMOCOCCAL VACCINE POLYVALENT NOS [Concomitant]
     Active Substance: PNEUMOCOCCAL VACCINE POLYVALENT
     Route: 065
  5. DICHLOROBENZYL ALCOHOL [Suspect]
     Active Substance: DICHLOROBENZYL ALCOHOL
  6. XANAX [Suspect]
     Active Substance: ALPRAZOLAM
     Dosage: 0.5 MG, TID, (1 TABLET AS NEEDED)
     Route: 048
  7. DIAMOX SEQUELS [Suspect]
     Active Substance: ACETAZOLAMIDE
  8. HUMIRA [Suspect]
     Active Substance: ADALIMUMAB
     Route: 058
  9. ULTRAM [Suspect]
     Active Substance: TRAMADOL HYDROCHLORIDE
  10. TYLENOL [Concomitant]
     Active Substance: ACETAMINOPHEN
     Route: 065
  11. FOSAMAX [Concomitant]
     Active Substance: ALENDRONATE SODIUM
     Route: 065
  12. PHENERGAN [Concomitant]
     Active Substance: PROMETHAZINE HYDROCHLORIDE
  13. VITAMIN D3 [Concomitant]
     Active Substance: CHOLECALCIFEROL
     Route: 065
  14. ZANTAC [Concomitant]
     Active Substance: RANITIDINE HYDROCHLORIDE
     Route: 065
  15. VITAMIN B12 [Concomitant]
     Active Substance: CYANOCOBALAMIN
     Route: 065
  16. BACTROBAN [Concomitant]
     Active Substance: MUPIROCIN\MUPIROCIN CALCIUM
  17. SIMPONI [Suspect]
     Active Substance: GOLIMUMAB
  18. DILAUDID [Suspect]
     Active Substance: HYDROMORPHONE HYDROCHLORIDE
  19. ERYTHROMYCIN. [Suspect]
     Active Substance: ERYTHROMYCIN
     Dosage: UNK
     Route: 065
  20. IRON [Suspect]
     Active Substance: IRON
  21. PLAQUENIL [Suspect]
     Active Substance: HYDROXYCHLOROQUINE SULFATE
  22. CELEXA [Suspect]
     Active Substance: CITALOPRAM HYDROBROMIDE
     Route: 065
  23. CETYLPYRIDINIUM CHLORIDE. [Suspect]
     Active Substance: CETYLPYRIDINIUM CHLORIDE
     Dosage: 10 MG DAILY
     Route: 065
  24. SINGULAIR [Concomitant]
     Active Substance: MONTELUKAST SODIUM
     Route: 065
  25. VITAMIN D [Concomitant]
     Active Substance: VITAMIN D NOS
     Route: 065
  26. CALCIUM CARBONATE. [Concomitant]
     Active Substance: CALCIUM CARBONATE
     Route: 065
  27. ZINC. [Concomitant]
     Active Substance: ZINC
  28. DELTASONE [Concomitant]
     Active Substance: PREDNISONE
     Route: 065
  29. NEXIUM 24HR [Concomitant]
     Active Substance: ESOMEPRAZOLE MAGNESIUM
  30. ZENPEP [Suspect]
     Active Substance: PANCRELIPASE AMYLASE\PANCRELIPASE LIPASE\PANCRELIPASE PROTEASE
     Dosage: UNK
     Route: 065
  31. AMPICILLIN [Suspect]
     Active Substance: AMPICILLIN
  32. CIPROFLOXACIN. [Suspect]
     Active Substance: CIPROFLOXACIN
  33. ABREVA [Suspect]
     Active Substance: DOCOSANOL
  34. TRILEPTAL [Suspect]
     Active Substance: OXCARBAZEPINE
  35. LAMICTAL [Concomitant]
     Active Substance: LAMOTRIGINE
     Route: 065
  36. MEDIQUE DIAMODE [Concomitant]
     Active Substance: LOPERAMIDE HYDROCHLORIDE
     Route: 065
  37. HYDROCORTISONE. [Concomitant]
     Active Substance: HYDROCORTISONE
  38. VITAMINS NOS [Concomitant]
     Active Substance: VITAMINS
  39. ENBREL [Suspect]
     Active Substance: ETANERCEPT
     Route: 065
  40. ISORDIL [Suspect]
     Active Substance: ISOSORBIDE DINITRATE
  41. COMPAZINE [Suspect]
     Active Substance: PROCHLORPERAZINE MALEATE
  42. DOXYCYCLINE. [Suspect]
     Active Substance: DOXYCYCLINE
  43. SUDAFED [Suspect]
     Active Substance: PSEUDOEPHEDRINE HYDROCHLORIDE
  44. TAMIFLU [Concomitant]
     Active Substance: OSELTAMIVIR PHOSPHATE
  45. RESTASIS [Concomitant]
     Active Substance: CYCLOSPORINE
     Route: 065
  46. FOLIC ACID. [Concomitant]
     Active Substance: FOLIC ACID
     Route: 065
  47. VICODIN [Concomitant]
     Active Substance: ACETAMINOPHEN\HYDROCODONE BITARTRATE
     Route: 065
  48. ISOPTO TEARS [Concomitant]
     Active Substance: HYPROMELLOSE 2910 (4000 MPA.S)
     Route: 065
  49. NEXIUM [Concomitant]
     Active Substance: ESOMEPRAZOLE MAGNESIUM
     Route: 065
  50. RETIN?A [Concomitant]
     Active Substance: TRETINOIN
     Route: 065
  51. ZADITOR [Concomitant]
     Active Substance: KETOTIFEN FUMARATE
     Route: 065
  52. LYRICA [Suspect]
     Active Substance: PREGABALIN
     Dosage: 100 MG, QHS
     Route: 048
  53. ACTEMRA [Suspect]
     Active Substance: TOCILIZUMAB
  54. HEPATITIS B VACCINE [Suspect]
     Active Substance: HEPATITIS B VIRUS VACCINE
  55. KEFLEX [Suspect]
     Active Substance: CEPHALEXIN
  56. SULFASALAZINE. [Suspect]
     Active Substance: SULFASALAZINE
  57. FLEXERIL [Concomitant]
     Active Substance: CYCLOBENZAPRINE HYDROCHLORIDE
  58. ZANAFLEX [Concomitant]
     Active Substance: TIZANIDINE HYDROCHLORIDE
     Route: 065
  59. NORCO [Concomitant]
     Active Substance: ACETAMINOPHEN\HYDROCODONE BITARTRATE
     Dosage: UNK
     Dates: start: 20161121
  60. PROTOPIC [Concomitant]
     Active Substance: TACROLIMUS
     Route: 065
  61. ZYRTEC [Suspect]
     Active Substance: CETIRIZINE HYDROCHLORIDE
     Dosage: 10 MG, QD, AS NEEDED
  62. GEODON [Suspect]
     Active Substance: ZIPRASIDONE HYDROCHLORIDE\ZIPRASIDONE MESYLATE
  63. ANTIVERT [Suspect]
     Active Substance: MECLIZINE HYDROCHLORIDE
     Dosage: 12.5 MG, TID, AS NECESSARY
     Route: 048
  64. CYCLOSPORINE. [Suspect]
     Active Substance: CYCLOSPORINE
  65. LASIX [Suspect]
     Active Substance: FUROSEMIDE
  66. BACTRIM [Suspect]
     Active Substance: SULFAMETHOXAZOLE\TRIMETHOPRIM
  67. METHOTREXATE. [Suspect]
     Active Substance: METHOTREXATE
  68. POTASSIUM [Suspect]
     Active Substance: POTASSIUM
  69. NASOCORT [Concomitant]
     Active Substance: BUDESONIDE
     Route: 065
  70. PREVACID [Concomitant]
     Active Substance: LANSOPRAZOLE
     Route: 065
  71. REFRESH [Concomitant]
     Active Substance: UNSPECIFIED INGREDIENT
     Route: 065
  72. RUBRAMIN [Concomitant]
     Active Substance: CYANOCOBALAMIN
     Route: 065
  73. ACTIFED (PSEUDOEPHEDRINE HYDROCHLORIDE\TRIPROLIDINE HYDROCHLORIDE) [Suspect]
     Active Substance: PSEUDOEPHEDRINE HYDROCHLORIDE\TRIPROLIDINE HYDROCHLORIDE
  74. RITUXAN [Suspect]
     Active Substance: RITUXIMAB
  75. SYNTHROID [Concomitant]
     Active Substance: LEVOTHYROXINE SODIUM
     Route: 065
  76. SYSTANE (HYPROMELLOSE 2910 (4000 MPA.S)) [Concomitant]
     Active Substance: HYPROMELLOSE 2910 (4000 MPA.S)
     Route: 065
  77. ARAVA [Suspect]
     Active Substance: LEFLUNOMIDE
  78. COLCHICINE. [Suspect]
     Active Substance: COLCHICINE
  79. DYAZIDE [Suspect]
     Active Substance: HYDROCHLOROTHIAZIDE\TRIAMTERENE
  80. LIALDA [Suspect]
     Active Substance: MESALAMINE
  81. METRONIDAZOLE. [Suspect]
     Active Substance: METRONIDAZOLE
     Route: 065
  82. ZOLOFT [Concomitant]
     Active Substance: SERTRALINE HYDROCHLORIDE
     Route: 065
  83. ADVAIR HFA [Concomitant]
     Active Substance: FLUTICASONE PROPIONATE\SALMETEROL XINAFOATE

REACTIONS (57)
  - Rheumatoid arthritis [Unknown]
  - Rhinorrhoea [Unknown]
  - Photophobia [Unknown]
  - Dry skin [Unknown]
  - Wound [Unknown]
  - Skin disorder [Unknown]
  - Dizziness [Unknown]
  - Asthenia [Unknown]
  - Dysphoria [Unknown]
  - Abdominal discomfort [Unknown]
  - Headache [Unknown]
  - Chills [Unknown]
  - Fatigue [Unknown]
  - Pain [Unknown]
  - Rash [Unknown]
  - Ear pain [Unknown]
  - Appetite disorder [Unknown]
  - Hypoaesthesia [Unknown]
  - Skin warm [Unknown]
  - Diarrhoea [Unknown]
  - Nausea [Unknown]
  - Contusion [Unknown]
  - Intestinal obstruction [Unknown]
  - Oral pain [Unknown]
  - Oedema [Unknown]
  - Visual impairment [Unknown]
  - Adverse event [Recovered/Resolved]
  - Gait disturbance [Unknown]
  - Haemorrhagic diathesis [Unknown]
  - Arthritis infective [Unknown]
  - Erythema [Unknown]
  - Osteoarthritis [Unknown]
  - Abdominal pain [Unknown]
  - Loss of consciousness [Unknown]
  - Anaphylactic reaction [Unknown]
  - Blister [Unknown]
  - Sneezing [Unknown]
  - Weight decreased [Recovered/Resolved]
  - Hallucination [Unknown]
  - Tenderness [Unknown]
  - Dysphagia [Unknown]
  - Arthralgia [Unknown]
  - Neck pain [Unknown]
  - Thinking abnormal [Unknown]
  - Joint swelling [Unknown]
  - Vomiting [Unknown]
  - Interstitial lung disease [Unknown]
  - Wheezing [Unknown]
  - Myalgia [Unknown]
  - Back pain [Unknown]
  - Dyspnoea [Unknown]
  - Musculoskeletal stiffness [Unknown]
  - Drug intolerance [Unknown]
  - Drug hypersensitivity [Unknown]
  - Pruritus [Unknown]
  - Constipation [Unknown]
  - Sjogren^s syndrome [Unknown]

NARRATIVE: CASE EVENT DATE: 20110111
